FAERS Safety Report 4505335-X (Version None)
Quarter: 2004Q4

REPORT INFORMATION
  Report Type: 
  Country: None (occurrence: None)
  Receive Date: 20041117
  Receipt Date: 20041103
  Transmission Date: 20050328
  Serious: Yes (Hospitalization)
  Sender: FDA-Public Use
  Company Number: 2004UW22684

PATIENT
  Age: 55 Year
  Sex: Male
  Weight: 92.986 kg

DRUGS (6)
  1. CRESTOR [Suspect]
     Indication: BLOOD CHOLESTEROL INCREASED
     Dosage: 20 MG PO
     Route: 048
     Dates: start: 20041008, end: 20041021
  2. CRESTOR [Suspect]
     Indication: BLOOD CHOLESTEROL INCREASED
     Dosage: 20 MG PO
     Route: 048
     Dates: start: 20041102
  3. TOPROL-XL [Concomitant]
  4. WARFARIN SODIUM [Concomitant]
  5. LOTREL [Concomitant]
  6. LANOXIN [Concomitant]

REACTIONS (6)
  - ARTHRALGIA [None]
  - CHEST DISCOMFORT [None]
  - CHEST PAIN [None]
  - DIFFICULTY IN WALKING [None]
  - GAIT DISTURBANCE [None]
  - MYALGIA [None]
